FAERS Safety Report 7512141-0 (Version None)
Quarter: 2011Q2

REPORT INFORMATION
  Report Type: 
  Country: None (occurrence: None)
  Receive Date: 20110520
  Receipt Date: 20110506
  Transmission Date: 20111010
  Serious: Yes (Life-Threatening)
  Sender: FDA-Public Use
  Company Number: 2011PV000025

PATIENT
  Age: 27 Year
  Sex: Male

DRUGS (4)
  1. MERCAPTOPURINE [Concomitant]
  2. DEPOCYT [Suspect]
     Indication: PROPHYLAXIS
     Dosage: 50 MGL X2; IT
     Dates: start: 20110121, end: 20110325
  3. ETOPOSIDE [Concomitant]
  4. METHITREXATE [Concomitant]

REACTIONS (2)
  - SUBDURAL HAEMATOMA [None]
  - VOMITING [None]
